FAERS Safety Report 4377863-1 (Version None)
Quarter: 2004Q2

REPORT INFORMATION
  Report Type: 
  Country: None (occurrence: None)
  Receive Date: 20040608
  Receipt Date: 20040524
  Transmission Date: 20050107
  Serious: Yes (Death)
  Sender: FDA-Public Use
  Company Number: 2004AP01726

PATIENT
  Age: 76 Year
  Sex: Male

DRUGS (11)
  1. IRESSA [Suspect]
     Indication: LUNG ADENOCARCINOMA
     Dosage: 250 MG DAILY PO
     Route: 048
     Dates: start: 20031016, end: 20031029
  2. IRESSA [Suspect]
     Indication: NON-SMALL CELL LUNG CANCER
     Dosage: 250 MG DAILY PO
     Route: 048
     Dates: start: 20031016, end: 20031029
  3. IRESSA [Suspect]
     Indication: LUNG ADENOCARCINOMA
     Dosage: 250 MG DAILY PO
     Route: 048
     Dates: start: 20031104, end: 20040122
  4. IRESSA [Suspect]
     Indication: NON-SMALL CELL LUNG CANCER
     Dosage: 250 MG DAILY PO
     Route: 048
     Dates: start: 20031104, end: 20040122
  5. HOKUNALIN [Concomitant]
  6. FAMOTIDINE [Concomitant]
  7. ADONA (AC-17) [Concomitant]
  8. TRANSAMIN [Concomitant]
  9. RADIOTHERAPY [Concomitant]
  10. CARBOPLATIN [Concomitant]
  11. PACLITAXEL [Concomitant]

REACTIONS (9)
  - ANOREXIA [None]
  - DYSPNOEA EXERTIONAL [None]
  - HAEMOPTYSIS [None]
  - INFECTION [None]
  - INTERSTITIAL LUNG DISEASE [None]
  - PYREXIA [None]
  - RADIATION PNEUMONITIS [None]
  - RASH [None]
  - STOMATITIS [None]
